FAERS Safety Report 5340880-9 (Version None)
Quarter: 2007Q2

REPORT INFORMATION
  Report Type: 
  Country: None (occurrence: None)
  Receive Date: 20070405
  Receipt Date: 20070131
  Transmission Date: 20071010
  Serious: No
  Sender: FDA-Public Use
  Company Number: US200702000565

PATIENT
  Age: 56 Year
  Sex: Female

DRUGS (6)
  1. CYMBALTA [Suspect]
     Indication: BONE PAIN
     Dosage: 50 MG
     Dates: start: 20060101, end: 20061001
  2. LOTREL [Concomitant]
  3. LEVOXYL [Concomitant]
  4. TOPROL-XL [Concomitant]
  5. ZOLOFT [Concomitant]
  6. TRAMADOL HCL [Concomitant]

REACTIONS (2)
  - IRRITABILITY [None]
  - THINKING ABNORMAL [None]
